FAERS Safety Report 15662402 (Version 1)
Quarter: 2018Q4

REPORT INFORMATION
  Report Type: Spontaneous
  Country: FR (occurrence: FR)
  Receive Date: 20181127
  Receipt Date: 20181127
  Transmission Date: 20190205
  Serious: Yes (Other)
  Sender: FDA-Public Use
  Company Number: FR-PROVELL PHARMACEUTICALS-2059322

PATIENT
  Age: 59 Year
  Sex: Female

DRUGS (3)
  1. EUTHYROX [Suspect]
     Active Substance: LEVOTHYROXINE SODIUM
     Indication: AUTOIMMUNE THYROIDITIS
     Dates: start: 2017
  2. EUTHYROX [Suspect]
     Active Substance: LEVOTHYROXINE SODIUM
     Dates: start: 2017
  3. METHOTREXATE. [Concomitant]
     Active Substance: METHOTREXATE

REACTIONS (22)
  - Asthenia [None]
  - Vitamin D decreased [None]
  - Psychomotor hyperactivity [None]
  - Logorrhoea [None]
  - Reading disorder [None]
  - Decreased appetite [None]
  - Visual impairment [None]
  - Thyroxine free increased [None]
  - Alopecia [None]
  - Malignant hypertension [None]
  - Aphasia [None]
  - Fatigue [None]
  - Weight increased [None]
  - Pain [None]
  - Decreased interest [None]
  - Blood phosphorus increased [None]
  - Personal relationship issue [None]
  - Muscle spasms [None]
  - Insomnia [None]
  - Migraine [None]
  - Blood thyroid stimulating hormone decreased [None]
  - Mood swings [None]

NARRATIVE: CASE EVENT DATE: 2017
